FAERS Safety Report 9056070 (Version 2)
Quarter: 2013Q1

REPORT INFORMATION
  Report Type: Report from Study
  Country: DE (occurrence: DE)
  Receive Date: 20130205
  Receipt Date: 20130211
  Transmission Date: 20140127
  Serious: Yes (Hospitalization)
  Sender: FDA-Public Use
  Company Number: PHHY2013DE009992

PATIENT
  Sex: Female
  Weight: 86 kg

DRUGS (13)
  1. AFINITOR [Suspect]
     Indication: BREAST CANCER METASTATIC
     Dosage: 10 MG, QD
     Route: 048
     Dates: start: 20130107, end: 20130123
  2. AFINITOR [Suspect]
     Dosage: 5 MG, QD
     Route: 048
     Dates: start: 20130124
  3. EXEMESTANE [Concomitant]
     Indication: BREAST CANCER METASTATIC
     Dosage: 25 MG, QD
     Route: 048
     Dates: start: 20130124
  4. ALLOPURINOL [Concomitant]
     Dosage: 100 MG, QD
     Route: 048
     Dates: start: 201109
  5. FUROSEMIDE [Concomitant]
     Dosage: 40 MG, QD
     Dates: start: 201109
  6. CLONIDINE [Concomitant]
     Dosage: 75 MG, BID
     Dates: start: 201109
  7. BISOPROLOL [Concomitant]
     Dosage: 10 MG, QD
     Dates: start: 200508
  8. L-THYROXIN [Concomitant]
     Dosage: 100 UG, QD
     Dates: start: 200508
  9. PREGABALIN [Concomitant]
     Dosage: 75 MG, BID
     Dates: start: 200508
  10. SIMVASTATIN [Concomitant]
     Dosage: 20 MG, QD
     Dates: start: 201109
  11. AMLODIPINE [Concomitant]
     Dosage: 10 MG, QD
     Dates: start: 201109
  12. MOVICOL [Concomitant]
     Dosage: UNK, QD
     Dates: start: 20110916
  13. METOCLOPRAMIDE [Concomitant]
     Dosage: UNK, TID
     Dates: start: 20120723

REACTIONS (5)
  - Ascites [Recovered/Resolved with Sequelae]
  - Pancytopenia [Recovered/Resolved with Sequelae]
  - Neutropenia [Recovered/Resolved]
  - Thrombocytopenia [Not Recovered/Not Resolved]
  - Metastases to liver [Unknown]
